FAERS Safety Report 23029223 (Version 1)
Quarter: 2023Q4

REPORT INFORMATION
  Report Type: Spontaneous
  Country: CA (occurrence: CA)
  Receive Date: 20231004
  Receipt Date: 20231004
  Transmission Date: 20240110
  Serious: Yes (Life-Threatening, Hospitalization, Disabling, Congenital Anomaly, Other)
  Sender: FDA-Public Use
  Company Number: CA-002147023-NVSC2023CA213132

PATIENT
  Sex: Male

DRUGS (1)
  1. CANAKINUMAB [Suspect]
     Active Substance: CANAKINUMAB
     Indication: Foetal exposure during pregnancy
     Dosage: MATERNAL EXPOSURE DURING PREGNANCY: UNK, QMO
     Route: 064

REACTIONS (5)
  - Congenital cardiovascular anomaly [Recovered/Resolved with Sequelae]
  - Pulmonary hypoplasia [Recovered/Resolved with Sequelae]
  - Patent ductus arteriosus [Recovered/Resolved with Sequelae]
  - Fallot^s tetralogy [Recovered/Resolved with Sequelae]
  - Foetal exposure during pregnancy [Unknown]

NARRATIVE: CASE EVENT DATE: 20220817
